FAERS Safety Report 4909311-4 (Version None)
Quarter: 2006Q1

REPORT INFORMATION
  Report Type: 
  Country: None (occurrence: None)
  Receive Date: 20060210
  Receipt Date: 20060210
  Transmission Date: 20060701
  Serious: Yes (Other)
  Sender: FDA-Public Use
  Company Number: None

PATIENT
  Age: 38 Year
  Sex: Female
  Weight: 74.8435 kg

DRUGS (1)
  1. INFED [Suspect]
     Indication: ANAEMIA
     Dosage: TEST DOSE IV BOLUS
     Route: 040
     Dates: start: 20060208, end: 20060208

REACTIONS (4)
  - HYPOAESTHESIA [None]
  - INFUSION RELATED REACTION [None]
  - PARAESTHESIA ORAL [None]
  - SWOLLEN TONGUE [None]
